FAERS Safety Report 18011775 (Version 1)
Quarter: 2020Q3

REPORT INFORMATION
  Report Type: Spontaneous
  Country: US (occurrence: US)
  Receive Date: 20200713
  Receipt Date: 20200713
  Transmission Date: 20201103
  Serious: Yes (Other)
  Sender: FDA-Public Use
  Company Number: US-ABBVIE-20K-163-3475276-00

PATIENT
  Age: 50 Year
  Sex: Male
  Weight: 72.64 kg

DRUGS (2)
  1. HUMIRA [Suspect]
     Active Substance: ADALIMUMAB
     Indication: RHEUMATOID ARTHRITIS
     Route: 058
  2. ENBREL [Concomitant]
     Active Substance: ETANERCEPT
     Indication: PRODUCT USED FOR UNKNOWN INDICATION

REACTIONS (9)
  - Interstitial lung disease [Recovered/Resolved]
  - Traumatic lung injury [Unknown]
  - Pulmonary mass [Unknown]
  - Obstructive airways disorder [Recovered/Resolved]
  - Illness [Unknown]
  - Rib fracture [Not Recovered/Not Resolved]
  - Lower respiratory tract infection bacterial [Unknown]
  - Pneumothorax [Unknown]
  - Respiratory tract infection [Unknown]

NARRATIVE: CASE EVENT DATE: 201409
